FAERS Safety Report 8757997 (Version 1)
Quarter: 2012Q4

REPORT INFORMATION
  Report Type: 
  Country: BR (occurrence: BR)
  Receive Date: 20120828
  Receipt Date: 20120828
  Transmission Date: 20130627
  Serious: Yes (Death, Other)
  Sender: FDA-Public Use
  Company Number: BR-AMGEN-BRASP2012053527

PATIENT
  Age: 23 Year
  Sex: Male
  Weight: 45 kg

DRUGS (2)
  1. ENBREL [Suspect]
     Indication: RHEUMATOID ARTHRITIS
     Dosage: 50 mg, once weekly
     Route: 058
  2. METHOTREXATE [Concomitant]

REACTIONS (3)
  - Infection [Fatal]
  - Oesophageal carcinoma [Unknown]
  - Nausea [Unknown]
